FAERS Safety Report 25669464 (Version 1)
Quarter: 2025Q3

REPORT INFORMATION
  Report Type: Spontaneous
  Country: US (occurrence: US)
  Receive Date: 20250812
  Receipt Date: 20250812
  Transmission Date: 20251021
  Serious: Yes (Other)
  Sender: COOPERSURGICAL
  Company Number: US-COOPERSURGICAL, INC.-2025CPS005978

PATIENT
  Age: 28 Year
  Sex: Female
  Weight: 72.562 kg

DRUGS (1)
  1. PARAGARD T 380A [Suspect]
     Active Substance: COPPER
     Indication: Contraception
     Route: 015
     Dates: start: 19930101, end: 201304

REACTIONS (5)
  - Uterine leiomyoma [Not Recovered/Not Resolved]
  - Uterine enlargement [Not Recovered/Not Resolved]
  - Device issue [Recovered/Resolved]
  - Device use issue [Recovered/Resolved]
  - Off label use [Unknown]

NARRATIVE: CASE EVENT DATE: 19991223
